FAERS Safety Report 4288588-5 (Version None)
Quarter: 2004Q1

REPORT INFORMATION
  Report Type: 
  Country: None (occurrence: None)
  Receive Date: 20040209
  Receipt Date: 20030311
  Transmission Date: 20041129
  Serious: Yes (Death, Hospitalization)
  Sender: FDA-Public Use
  Company Number: CA-GLAXOSMITHKLINE-A0400017A

PATIENT
  Age: 65 Year
  Sex: Male
  Weight: 80 kg

DRUGS (4)
  1. ALBENDAZOLE [Suspect]
     Indication: ECHINOCOCCIASIS
     Dosage: 400MG TWICE PER DAY
     Route: 048
     Dates: start: 20030207
  2. ALDACTONE [Concomitant]
     Dosage: 25MG PER DAY
     Route: 048
  3. METOPROLOL [Concomitant]
     Dosage: 12.5MG TWICE PER DAY
     Route: 048
  4. FLOMAX [Concomitant]
     Dosage: .4MG PER DAY
     Route: 048

REACTIONS (8)
  - BALANCE DISORDER [None]
  - BRONCHOPNEUMONIA [None]
  - DIFFUSE ALVEOLAR DAMAGE [None]
  - HAEMORRHAGE [None]
  - KLEBSIELLA SEPSIS [None]
  - OESOPHAGEAL VARICES HAEMORRHAGE [None]
  - PANCYTOPENIA [None]
  - SEPTIC SHOCK [None]
